FAERS Safety Report 13190542 (Version 4)
Quarter: 2017Q1

REPORT INFORMATION
  Report Type: Spontaneous
  Country: SI (occurrence: SI)
  Receive Date: 20170206
  Receipt Date: 20170221
  Transmission Date: 20170428
  Serious: Yes (Other)
  Sender: FDA-Public Use
  Company Number: PHHY2017SI017011

PATIENT
  Age: 51 Year
  Sex: Female

DRUGS (2)
  1. CICLOSPORIN [Suspect]
     Active Substance: CYCLOSPORINE
     Indication: PROPHYLAXIS AGAINST GRAFT VERSUS HOST DISEASE
  2. CICLOSPORIN [Suspect]
     Active Substance: CYCLOSPORINE
     Indication: BONE MARROW TRANSPLANT
     Dosage: UNK
     Route: 065

REACTIONS (14)
  - Reduced facial expression [Unknown]
  - Extensor plantar response [Unknown]
  - Muscle rigidity [Unknown]
  - Posterior reversible encephalopathy syndrome [Unknown]
  - Tremor [Unknown]
  - Parkinsonism [Unknown]
  - Agitation [Unknown]
  - Confusional state [Unknown]
  - Bradykinesia [Unknown]
  - Dystonia [Unknown]
  - Movement disorder [Unknown]
  - Encephalopathy [Unknown]
  - Disorientation [Unknown]
  - Therapeutic response decreased [Unknown]
